FAERS Safety Report 17606886 (Version 1)
Quarter: 2020Q1

REPORT INFORMATION
  Report Type: Spontaneous
  Country: US (occurrence: US)
  Receive Date: 20200331
  Receipt Date: 20200331
  Transmission Date: 20200409
  Serious: No
  Sender: FDA-Public Use
  Company Number: US-TEVA-2020-US-1212712

PATIENT
  Age: 49 Year
  Sex: Male

DRUGS (3)
  1. HYDROCHLOROTHIAZIDE-TEVA [Suspect]
     Active Substance: HYDROCHLOROTHIAZIDE
     Indication: ANTACID THERAPY
  2. HYDROCHLOROTHIAZIDE-TEVA [Suspect]
     Active Substance: HYDROCHLOROTHIAZIDE
     Indication: DIURETIC THERAPY
     Route: 065
     Dates: start: 20200305
  3. HYDROCHLOROTHIAZIDE-TEVA [Suspect]
     Active Substance: HYDROCHLOROTHIAZIDE
     Indication: BLOOD PRESSURE MANAGEMENT

REACTIONS (4)
  - Blood pressure increased [Not Recovered/Not Resolved]
  - Product substitution issue [Unknown]
  - Drug ineffective [Unknown]
  - Urine output decreased [Not Recovered/Not Resolved]
